FAERS Safety Report 12824694 (Version 2)
Quarter: 2016Q4

REPORT INFORMATION
  Report Type: Report from Study
  Country: BR (occurrence: BR)
  Receive Date: 20161007
  Receipt Date: 20161024
  Transmission Date: 20170207
  Serious: Yes (Hospitalization, Other)
  Sender: FDA-Public Use
  Company Number: PHHY2016BR136374

PATIENT
  Sex: Female
  Weight: 47.5 kg

DRUGS (3)
  1. EXJADE [Suspect]
     Active Substance: DEFERASIROX
     Indication: SPHEROCYTIC ANAEMIA
     Dosage: 2 DF, QD
     Route: 048
     Dates: start: 2001
  2. FOLIC ACID. [Concomitant]
     Active Substance: FOLIC ACID
     Indication: HAEMOLYTIC ANAEMIA
     Dosage: 10 MG, QD
     Route: 065
  3. EXJADE [Suspect]
     Active Substance: DEFERASIROX
     Indication: HEPATIC CIRRHOSIS

REACTIONS (6)
  - Immunodeficiency [Unknown]
  - Influenza [Recovered/Resolved]
  - Haematocrit decreased [Unknown]
  - General physical health deterioration [Unknown]
  - Sinusitis [Recovered/Resolved]
  - Diabetes mellitus [Not Recovered/Not Resolved]
